FAERS Safety Report 7876696-9 (Version None)
Quarter: 2011Q4

REPORT INFORMATION
  Report Type: 
  Country: None (occurrence: None)
  Receive Date: 20111031
  Receipt Date: 20111020
  Transmission Date: 20120403
  Serious: No
  Sender: FDA-Public Use
  Company Number: US-BAYER-2011-102087

PATIENT
  Sex: Female

DRUGS (1)
  1. MIRENA [Suspect]

REACTIONS (4)
  - BACK PAIN [None]
  - ARTHRALGIA [None]
  - WEIGHT INCREASED [None]
  - OEDEMA [None]
